FAERS Safety Report 20462096 (Version 1)
Quarter: 2022Q1

REPORT INFORMATION
  Report Type: Spontaneous
  Country: CA (occurrence: CA)
  Receive Date: 20220211
  Receipt Date: 20220211
  Transmission Date: 20220424
  Serious: Yes (Other)
  Sender: FDA-Public Use
  Company Number: CA-DSPHARMA-2022SUN000406

PATIENT
  Age: 47 Year
  Sex: Female
  Weight: 80.28 kg

DRUGS (1)
  1. LATUDA [Suspect]
     Active Substance: LURASIDONE HYDROCHLORIDE
     Dosage: UNK, QD
     Route: 048

REACTIONS (2)
  - Restless legs syndrome [Recovered/Resolved]
  - Tremor [Recovered/Resolved]
